FAERS Safety Report 5833980-8 (Version None)
Quarter: 2008Q3

REPORT INFORMATION
  Report Type: 
  Country: None (occurrence: None)
  Receive Date: 20080801
  Receipt Date: 20080801
  Transmission Date: 20090109
  Serious: Yes (Hospitalization)
  Sender: FDA-Public Use
  Company Number: None

PATIENT
  Sex: Male
  Weight: 92.3 kg

DRUGS (2)
  1. DACARBAZINE [Suspect]
     Indication: MALIGNANT MELANOMA
     Dosage: 2160MG, IV Q21DAYS
     Route: 042
     Dates: start: 20080709
  2. DASATINIB - 70MG - BRISTOL-MYERS SQUIBB [Suspect]
     Indication: MALIGNANT MELANOMA
     Dosage: 70MG ORALLY BID
     Route: 048
     Dates: start: 20080710, end: 20080727

REACTIONS (3)
  - FEBRILE NEUTROPENIA [None]
  - GROIN INFECTION [None]
  - WOUND INFECTION [None]
